FAERS Safety Report 17855656 (Version 1)
Quarter: 2020Q2

REPORT INFORMATION
  Report Type: Spontaneous
  Country: US (occurrence: US)
  Receive Date: 20200603
  Receipt Date: 20200603
  Transmission Date: 20200714
  Serious: No
  Sender: FDA-Public Use
  Company Number: US-BAYER-2020-104142

PATIENT
  Age: 79 Year
  Sex: Female
  Weight: 34 kg

DRUGS (1)
  1. MIRALAX [Suspect]
     Active Substance: POLYETHYLENE GLYCOL 3350
     Dosage: 1 TEASPOON
     Route: 048

REACTIONS (2)
  - Prescribed underdose [Unknown]
  - Incorrect dose administered [Unknown]
